FAERS Safety Report 23303226 (Version 1)
Quarter: 2023Q4

REPORT INFORMATION
  Report Type: Report from Study
  Country: JP (occurrence: None)
  Receive Date: 20231215
  Receipt Date: 20231215
  Transmission Date: 20240109
  Serious: Yes (Other)
  Sender: FDA-Public Use
  Company Number: 2023A267944

PATIENT
  Age: 84 Year
  Sex: Female
  Weight: 46 kg

DRUGS (2)
  1. ONDEXXYA [Suspect]
     Active Substance: ANDEXANET ALFA
     Dosage: DOSE UNKNOWN
     Route: 042
  2. RIVAROXABAN [Concomitant]
     Active Substance: RIVAROXABAN
     Indication: Atrial fibrillation
     Dosage: DOSE UNKNOWN
     Route: 048

REACTIONS (2)
  - Heparin resistance [Not Recovered/Not Resolved]
  - Cardiopulmonary failure [Not Recovered/Not Resolved]

NARRATIVE: CASE EVENT DATE: 20220818
